FAERS Safety Report 26217124 (Version 1)
Quarter: 2025Q4

REPORT INFORMATION
  Report Type: Spontaneous
  Country: EU (occurrence: EU)
  Receive Date: 20251231
  Receipt Date: 20251231
  Transmission Date: 20260117
  Serious: Yes (Other)
  Sender: ACCORD
  Company Number: None

PATIENT
  Age: 67 Year
  Sex: Female
  Weight: 58 kg

DRUGS (4)
  1. FLUOROURACIL [Suspect]
     Active Substance: FLUOROURACIL
     Indication: Anal cancer
     Dosage: NR
     Dates: start: 20251105, end: 20251105
  2. CISPLATIN [Suspect]
     Active Substance: CISPLATIN
     Indication: Anal cancer
     Dosage: NR
     Dates: start: 20251105, end: 20251105
  3. TAXOTERE [Suspect]
     Active Substance: DOCETAXEL
     Indication: Anal cancer
     Dosage: NR
     Dates: start: 20251105, end: 20251105
  4. PAROXETINE [Suspect]
     Active Substance: PAROXETINE
     Indication: Depression
     Dates: start: 20250101, end: 20251108

REACTIONS (2)
  - Hyponatraemia [Recovering/Resolving]
  - Seizure [Recovered/Resolved]

NARRATIVE: CASE EVENT DATE: 20251108
